FAERS Safety Report 12258678 (Version 1)
Quarter: 2016Q2

REPORT INFORMATION
  Report Type: Spontaneous
  Country: US (occurrence: US)
  Receive Date: 20160412
  Receipt Date: 20160412
  Transmission Date: 20160815
  Serious: No
  Sender: FDA-Public Use
  Company Number: US-SA-2015SA055165

PATIENT
  Sex: Male

DRUGS (6)
  1. IBUPROFEN. [Concomitant]
     Active Substance: IBUPROFEN
     Indication: MULTIPLE ALLERGIES
     Dosage: TAKEN FROM: A WEEK AGO
     Route: 065
  2. IBUPROFEN. [Concomitant]
     Active Substance: IBUPROFEN
     Indication: HEADACHE
     Dosage: TAKEN FROM: A WEEK AGO
     Route: 065
  3. IBUPROFEN. [Concomitant]
     Active Substance: IBUPROFEN
     Indication: OROPHARYNGEAL PAIN
     Dosage: TAKEN FROM: A WEEK AGO
     Route: 065
  4. ALLEGRA [Suspect]
     Active Substance: FEXOFENADINE HYDROCHLORIDE
     Indication: MULTIPLE ALLERGIES
     Dosage: TAKEN FROM: 3-4 DAYS AGO
     Route: 048
  5. ALLEGRA [Suspect]
     Active Substance: FEXOFENADINE HYDROCHLORIDE
     Indication: OROPHARYNGEAL PAIN
     Dosage: TAKEN FROM: 3-4 DAYS AGO
     Route: 048
  6. ALLEGRA [Suspect]
     Active Substance: FEXOFENADINE HYDROCHLORIDE
     Indication: HEADACHE
     Dosage: TAKEN FROM: 3-4 DAYS AGO
     Route: 048

REACTIONS (1)
  - Drug ineffective [Unknown]
